FAERS Safety Report 19215769 (Version 2)
Quarter: 2021Q2

REPORT INFORMATION
  Report Type: Spontaneous
  Country: ES (occurrence: ES)
  Receive Date: 20210505
  Receipt Date: 20210514
  Transmission Date: 20210717
  Serious: Yes (Hospitalization, Other)
  Sender: FDA-Public Use
  Company Number: ES-SA-2021SA145881

PATIENT
  Age: 25 Year
  Sex: Female

DRUGS (3)
  1. ETHINYLESTRADIOL [Concomitant]
     Active Substance: ETHINYL ESTRADIOL
     Indication: HYPERTRICHOSIS
     Dosage: 35 UG, QD
  2. TRIAMCINOLONE ACETONIDE. [Suspect]
     Active Substance: TRIAMCINOLONE ACETONIDE
     Indication: OTITIS MEDIA
     Dosage: 40 MG, QD
  3. CYPROTERONE ACETATE [Concomitant]
     Active Substance: CYPROTERONE ACETATE
     Indication: HYPERTRICHOSIS
     Dosage: 2 MG, QD

REACTIONS (11)
  - Gait disturbance [Recovering/Resolving]
  - Mobility decreased [Recovering/Resolving]
  - Groin pain [Recovering/Resolving]
  - Pain [Recovering/Resolving]
  - Prothrombin level increased [Unknown]
  - Arthralgia [Recovering/Resolving]
  - Joint stiffness [Recovering/Resolving]
  - Osteosclerosis [Recovering/Resolving]
  - Osteonecrosis [Recovering/Resolving]
  - Pain in extremity [Recovering/Resolving]
  - Bone cyst [Recovering/Resolving]
